FAERS Safety Report 9312936 (Version 1)
Quarter: 2013Q2

REPORT INFORMATION
  Report Type: Report from Study
  Country: US (occurrence: US)
  Receive Date: 20130528
  Receipt Date: 20130528
  Transmission Date: 20140414
  Serious: No
  Sender: FDA-Public Use
  Company Number: US-ABBOTT-13P-163-1062986-00

PATIENT
  Age: 56 Year
  Sex: Male
  Weight: 90.8 kg

DRUGS (10)
  1. ANDROGEL [Suspect]
     Indication: BLOOD TESTOSTERONE DECREASED
     Dosage: ONE PUMP ACTUATION
     Dates: start: 201301
  2. FLU VACCINE [Suspect]
     Indication: INFLUENZA IMMUNISATION
     Dates: start: 201301, end: 201301
  3. ZOLOFT [Concomitant]
     Indication: DEPRESSION
  4. RESTORIL [Concomitant]
     Indication: INSOMNIA
  5. FLEXERIL [Concomitant]
     Indication: MUSCLE SPASMS
  6. KLONOPIN [Concomitant]
     Indication: SLEEP DISORDER
  7. FOLIC ACID [Concomitant]
     Indication: VITAMIN SUPPLEMENTATION
  8. DILAUDID [Concomitant]
     Indication: BACK PAIN
  9. OXYCONTIN [Concomitant]
     Indication: BACK PAIN
  10. NICOTINE PATCH [Concomitant]
     Indication: EX-TOBACCO USER

REACTIONS (9)
  - Drug administered at inappropriate site [Unknown]
  - Drug ineffective [Not Recovered/Not Resolved]
  - Influenza [Recovered/Resolved]
  - Vomiting [Recovered/Resolved]
  - Nausea [Recovered/Resolved]
  - Headache [Recovered/Resolved]
  - Pyrexia [Recovered/Resolved]
  - Chills [Recovered/Resolved]
  - Hyperhidrosis [Recovered/Resolved]
